FAERS Safety Report 11109306 (Version 1)
Quarter: 2015Q2

REPORT INFORMATION
  Report Type: Spontaneous
  Country: US (occurrence: US)
  Receive Date: 20150513
  Receipt Date: 20150513
  Transmission Date: 20150821
  Serious: No
  Sender: FDA-Public Use
  Company Number: US-JNJFOC-20150210951

PATIENT
  Age: 22 Year
  Sex: Male
  Weight: 88.45 kg

DRUGS (3)
  1. ADDERALL [Concomitant]
     Active Substance: AMPHETAMINE ASPARTATE\AMPHETAMINE SULFATE\DEXTROAMPHETAMINE SACCHARATE\DEXTROAMPHETAMINE SULFATE
     Route: 065
  2. INVEGA SUSTENNA [Suspect]
     Active Substance: PALIPERIDONE PALMITATE
     Indication: SCHIZOPHRENIA
     Route: 030
  3. INVEGA SUSTENNA [Suspect]
     Active Substance: PALIPERIDONE PALMITATE
     Indication: SCHIZOPHRENIA
     Route: 030
     Dates: start: 20140926

REACTIONS (12)
  - Lethargy [Recovered/Resolved]
  - Dyskinesia [Recovered/Resolved]
  - Dysphonia [Recovered/Resolved]
  - Dizziness [Recovered/Resolved]
  - Irritability [Recovered/Resolved]
  - Dizziness [Recovered/Resolved]
  - Thinking abnormal [Recovered/Resolved]
  - Drug dose omission [Unknown]
  - Feeling abnormal [Recovered/Resolved]
  - Apathy [Recovered/Resolved]
  - Anhedonia [Recovered/Resolved]
  - Physical assault [Recovered/Resolved]

NARRATIVE: CASE EVENT DATE: 2014
